FAERS Safety Report 5066664-7 (Version None)
Quarter: 2006Q3

REPORT INFORMATION
  Report Type: 
  Country: None (occurrence: None)
  Receive Date: 20060714
  Receipt Date: 20050616
  Transmission Date: 20061208
  Serious: Yes (Other)
  Sender: FDA-Public Use
  Company Number: HQWYE603221JUN05

PATIENT
  Age: 65 Year
  Sex: Female
  Weight: 59.02 kg

DRUGS (6)
  1. ADVIL [Suspect]
     Indication: PAIN
     Dosage: SEE IMAGE
     Route: 048
     Dates: end: 20050301
  2. ADVIL [Suspect]
     Indication: PAIN
     Dosage: SEE IMAGE
     Route: 048
     Dates: start: 20050615
  3. GLYBURIDE [Concomitant]
  4. CHLORTHALIDONE [Concomitant]
  5. SYNTHROID [Concomitant]
  6. K-DUR 10 [Concomitant]

REACTIONS (2)
  - CONDITION AGGRAVATED [None]
  - HYPERTENSION [None]
